FAERS Safety Report 9225093 (Version 1)
Quarter: 2013Q2

REPORT INFORMATION
  Report Type: Spontaneous
  Country: AU (occurrence: AU)
  Receive Date: 20130411
  Receipt Date: 20130411
  Transmission Date: 20140414
  Serious: Yes (Other)
  Sender: FDA-Public Use
  Company Number: AU-PFIZER INC-2013108589

PATIENT
  Sex: Male

DRUGS (2)
  1. VIAGRA [Suspect]
     Dosage: UNK
  2. VIAGRA [Suspect]
     Dosage: 1 DF, UNK

REACTIONS (4)
  - Visual acuity reduced [Unknown]
  - Headache [Unknown]
  - Rash [Unknown]
  - Disorientation [Unknown]
